FAERS Safety Report 7296787-3 (Version None)
Quarter: 2011Q1

REPORT INFORMATION
  Report Type: 
  Country: None (occurrence: None)
  Receive Date: 20110216
  Receipt Date: 20110113
  Transmission Date: 20110831
  Serious: Yes (Other)
  Sender: FDA-Public Use
  Company Number: B0699474A

PATIENT
  Age: 53 Year
  Sex: Female

DRUGS (2)
  1. PREDNISOLONE [Suspect]
     Indication: PLEURAL EFFUSION
     Route: 065
  2. MELPHALAN [Suspect]
     Indication: PLEURAL EFFUSION
     Route: 065

REACTIONS (2)
  - PLEURAL EFFUSION [None]
  - DRUG INEFFECTIVE [None]
